FAERS Safety Report 10237480 (Version 3)
Quarter: 2014Q3

REPORT INFORMATION
  Report Type: Spontaneous
  Country: JP (occurrence: JP)
  Receive Date: 20140615
  Receipt Date: 20140729
  Transmission Date: 20150326
  Serious: Yes (Hospitalization)
  Sender: FDA-Public Use
  Company Number: JP-BRISTOL-MYERS SQUIBB COMPANY-20986220

PATIENT
  Age: 73 Year
  Sex: Female

DRUGS (7)
  1. JANUVIA [Concomitant]
     Active Substance: SITAGLIPTIN PHOSPHATE
     Indication: DIABETES MELLITUS
     Route: 048
     Dates: start: 201202
  2. OLMETEC [Concomitant]
     Active Substance: OLMESARTAN MEDOXOMIL
     Indication: DIABETES MELLITUS
     Route: 048
     Dates: start: 200902
  3. METGLUCO [Suspect]
     Active Substance: METFORMIN HYDROCHLORIDE
     Indication: DIABETES MELLITUS
     Dosage: DOSE IND TO 1500MG/DAY.?20JN14- 03MR14?26JN08- JAN10 250 MG 2 IN 1D?MAY13-       250 MG 3 IN 1D
     Route: 048
  4. AMARYL [Concomitant]
     Active Substance: GLIMEPIRIDE
     Indication: DIABETES MELLITUS
     Dosage: DEC08-  2 MG ,1 IN 1D?JUN09-   JL9 1 MG 1 IN 1D?2MG,3 GM FM 20JN4-MR14,750 MG FM (JLY 09TOJN10)
     Route: 048
     Dates: start: 200810
  5. NEO-MINOPHAGEN C [Suspect]
     Active Substance: AMMONIUM GLYCYRRHIZATE
     Dosage: ALSO RECEIVED 3 GRAM ORAL
     Route: 042
  6. ACTOS [Concomitant]
     Active Substance: PIOGLITAZONE HYDROCHLORIDE
     Indication: DIABETES MELLITUS
     Route: 048
     Dates: start: 200810, end: 201305
  7. LANTUS [Concomitant]
     Active Substance: INSULIN GLARGINE
     Indication: DIABETES MELLITUS
     Dosage: INJECTION)
     Route: 058
     Dates: start: 200906

REACTIONS (1)
  - Liver injury [Recovered/Resolved]
